FAERS Safety Report 9005176 (Version 1)
Quarter: 2013Q1

REPORT INFORMATION
  Report Type: Spontaneous
  Country: US (occurrence: US)
  Receive Date: 20130109
  Receipt Date: 20130109
  Transmission Date: 20140127
  Serious: Yes (Hospitalization)
  Sender: FDA-Public Use
  Company Number: US-COVIDIEN/TYCO HEALTHCARE/MALLINCKRODT-T201204432

PATIENT
  Age: 44 Year
  Sex: Female

DRUGS (5)
  1. MORPHINE [Suspect]
     Indication: BACK PAIN
     Dosage: 30 MG, BID
     Dates: start: 20121129
  2. NORCO [Concomitant]
     Indication: BACK PAIN
     Dosage: 10 MG, BID
     Route: 048
  3. TRIAMTERENE [Concomitant]
     Indication: NEPHROLITHIASIS
     Dosage: 375/25 MG, QD
     Route: 048
     Dates: start: 1997
  4. CELEXA                             /00582602/ [Concomitant]
     Indication: PAIN MANAGEMENT
     Dosage: 10 MG, QD
     Route: 048
  5. ATIVAN [Concomitant]
     Indication: ANXIETY
     Dosage: 0.5 MG, BID
     Route: 048
     Dates: start: 2003

REACTIONS (7)
  - Blood potassium decreased [Recovered/Resolved]
  - Arrhythmia [Recovered/Resolved]
  - Muscle spasms [Recovered/Resolved]
  - Restless legs syndrome [Recovered/Resolved]
  - Drug withdrawal syndrome [Recovered/Resolved]
  - Palpitations [Recovered/Resolved]
  - Insomnia [Recovered/Resolved]
